FAERS Safety Report 9516869 (Version 2)
Quarter: 2013Q4

REPORT INFORMATION
  Report Type: Report from Study
  Country: US (occurrence: US)
  Receive Date: 20130911
  Receipt Date: 20131014
  Transmission Date: 20140711
  Serious: No
  Sender: FDA-Public Use
  Company Number: US-VERTEX PHARMACEUTICALS INC-2013-009383

PATIENT
  Age: 57 Year
  Sex: Male
  Weight: 86 kg

DRUGS (13)
  1. VX-950 (TELAPREVIR) [Suspect]
     Indication: HEPATITIS C
     Dosage: 750 MG, TID
     Route: 048
     Dates: start: 20130830
  2. RIBAVIRIN [Suspect]
     Indication: HEPATITIS C
     Dosage: 200 MG, BID
     Route: 048
     Dates: start: 20130830
  3. RIBAVIRIN [Suspect]
     Dosage: DOSE LOWERED
  4. PEGASYS [Suspect]
     Indication: HEPATITIS C
     Dosage: 150 ?G, QW
     Route: 058
     Dates: start: 20130830
  5. INSULIN [Concomitant]
  6. LASIX [Concomitant]
  7. ONDANSETRON [Concomitant]
  8. NORVASC [Concomitant]
  9. HYDROCHLOROTHIAZIDE [Concomitant]
  10. CELEXA [Concomitant]
  11. ELAVIL [Concomitant]
  12. DEXILANT [Concomitant]
  13. VYTORIN [Concomitant]

REACTIONS (1)
  - Piloerection [Recovered/Resolved]
